FAERS Safety Report 23327981 (Version 1)
Quarter: 2023Q4

REPORT INFORMATION
  Report Type: Spontaneous
  Country: HU (occurrence: HU)
  Receive Date: 20231221
  Receipt Date: 20231221
  Transmission Date: 20240109
  Serious: Yes (Hospitalization, Other)
  Sender: FDA-Public Use
  Company Number: HU-GLAXOSMITHKLINE-HU2023EME167417

PATIENT
  Sex: Female

DRUGS (1)
  1. LAMOTRIGINE [Suspect]
     Active Substance: LAMOTRIGINE
     Indication: Product used for unknown indication
     Dosage: UNK
     Route: 065

REACTIONS (12)
  - Skin wound [Unknown]
  - Disease progression [Unknown]
  - Pain of skin [Unknown]
  - Fluid intake reduced [Unknown]
  - Mucosal disorder [Unknown]
  - Cutaneous symptom [Unknown]
  - Sedation [Unknown]
  - Shock [Unknown]
  - Localised infection [Unknown]
  - Systemic infection [Unknown]
  - Toxic epidermal necrolysis [Unknown]
  - Rash maculo-papular [Unknown]
